FAERS Safety Report 7551024-7 (Version None)
Quarter: 2011Q2

REPORT INFORMATION
  Report Type: 
  Country: None (occurrence: None)
  Receive Date: 20110609
  Receipt Date: 20110601
  Transmission Date: 20111010
  Serious: Yes (Congenital Anomaly)
  Sender: FDA-Public Use
  Company Number: 1000021289

PATIENT
  Sex: Male

DRUGS (1)
  1. LEXAPRO [Suspect]
     Indication: ANXIETY
     Dosage: 20 MG (20 MG,1 IN 1 D),TRANSPLACENTAL
     Route: 064
     Dates: start: 20080201, end: 20081123

REACTIONS (2)
  - VASCULAR ANOMALY [None]
  - MATERNAL DRUGS AFFECTING FOETUS [None]
